FAERS Safety Report 9139285 (Version 1)
Quarter: 2013Q1

REPORT INFORMATION
  Report Type: Spontaneous
  Country: KR (occurrence: KR)
  Receive Date: 20130305
  Receipt Date: 20130305
  Transmission Date: 20140127
  Serious: Yes (Hospitalization, Other)
  Sender: FDA-Public Use
  Company Number: PHHY2013KR019761

PATIENT
  Age: 38 Year
  Sex: Male

DRUGS (2)
  1. CLOZAPINE [Suspect]
     Indication: MANIA
     Dosage: 12.5 MG, UNK
  2. CLOZAPINE [Suspect]
     Dosage: 200 MG, UNK

REACTIONS (6)
  - Renal failure acute [Unknown]
  - Generalised oedema [Unknown]
  - Dysuria [Unknown]
  - Kidney enlargement [Unknown]
  - Hyperthermia [Recovered/Resolved]
  - Weight increased [Unknown]
